FAERS Safety Report 8557143-0 (Version None)
Quarter: 2012Q3

REPORT INFORMATION
  Report Type: 
  Country: None (occurrence: None)
  Receive Date: 20120801
  Receipt Date: 20120723
  Transmission Date: 20120928
  Serious: Yes (Other)
  Sender: FDA-Public Use
  Company Number: JP-PFIZER INC-2012165513

PATIENT
  Age: 61 Year
  Sex: Male

DRUGS (6)
  1. LOXONIN [Concomitant]
  2. SUTENT [Suspect]
     Dosage: 37.5 MG/DAY OR 25 MG/DAY ON AN ALTERNATE-DAY BASIS
     Route: 048
  3. ZOMETA [Concomitant]
  4. SUTENT [Suspect]
     Dosage: 25 MG, 1X/DAY (3RD COURSE)
  5. ASPARA-CA [Concomitant]
  6. SUTENT [Suspect]
     Indication: RENAL CELL CARCINOMA
     Dosage: 50 MG, 1X/DAY (1ST AND 2ND COURSES)
     Dates: start: 20110519

REACTIONS (1)
  - HYPERTENSION [None]
